FAERS Safety Report 5069176-X (Version None)
Quarter: 2006Q3

REPORT INFORMATION
  Report Type: 
  Country: None (occurrence: None)
  Receive Date: 20060717
  Receipt Date: 20060407
  Transmission Date: 20061208
  Serious: No
  Sender: FDA-Public Use
  Company Number: 2006000811

PATIENT
  Age: 62 Year
  Sex: Female

DRUGS (2)
  1. TARCEVA [Suspect]
     Indication: LUNG NEOPLASM MALIGNANT
     Dosage: SEE IMAGE
     Route: 048
     Dates: start: 20060301, end: 20060321
  2. TARCEVA [Suspect]
     Indication: LUNG NEOPLASM MALIGNANT
     Dosage: SEE IMAGE
     Route: 048
     Dates: start: 20060321

REACTIONS (11)
  - COUGH [None]
  - DERMATITIS ACNEIFORM [None]
  - DIARRHOEA [None]
  - MOUTH ULCERATION [None]
  - OEDEMA PERIPHERAL [None]
  - PAIN OF SKIN [None]
  - PRODUCTIVE COUGH [None]
  - SKIN BURNING SENSATION [None]
  - SKIN EXFOLIATION [None]
  - STOMATITIS [None]
  - SWELLING FACE [None]
